FAERS Safety Report 25811998 (Version 4)
Quarter: 2025Q4

REPORT INFORMATION
  Report Type: Spontaneous
  Country: CA (occurrence: CA)
  Receive Date: 20250917
  Receipt Date: 20251209
  Transmission Date: 20260118
  Serious: Yes (Disabling, Other)
  Sender: PFIZER
  Company Number: CA-PFIZER INC-202500164640

PATIENT
  Age: 21 Year
  Sex: Female
  Weight: 61 kg

DRUGS (6)
  1. IXIFI [Suspect]
     Active Substance: INFLIXIMAB-QBTX
     Indication: Colitis ulcerative
     Dosage: 6.5 MG/KG, EVERY 4 WEEKS
     Route: 042
     Dates: start: 20250716
  2. IXIFI [Suspect]
     Active Substance: INFLIXIMAB-QBTX
     Dosage: 396 MG, AFTER 4 WEEKS AND 1 DAY
     Route: 042
     Dates: start: 20250814
  3. IXIFI [Suspect]
     Active Substance: INFLIXIMAB-QBTX
     Dosage: 396.5 MG, 4WEEKS, (1DF, 6.6 MG/KG, EVERY 4 WEEKS)
     Route: 042
     Dates: start: 20250911
  4. IXIFI [Suspect]
     Active Substance: INFLIXIMAB-QBTX
     Dosage: 396.5 MG, EVERY 4 WEEKS (1DF, 6.6 MG/KG, EVERY 4 WEEKS)
     Route: 042
     Dates: start: 20251007
  5. IXIFI [Suspect]
     Active Substance: INFLIXIMAB-QBTX
     Dosage: 400 MG, EVERY 4 WEEKS, (1DF, EVERY 4 WEEKS, 6.5 MG/KG)
     Route: 042
     Dates: start: 20251104
  6. IXIFI [Suspect]
     Active Substance: INFLIXIMAB-QBTX
     Dosage: 400 MG, 4 WEEKS (1DF, EVERY 4 WEEKS, 6.5 MG/KG)
     Route: 042
     Dates: start: 20251202

REACTIONS (9)
  - Gait disturbance [Not Recovered/Not Resolved]
  - Dysstasia [Not Recovered/Not Resolved]
  - Conversion disorder [Not Recovered/Not Resolved]
  - Vomiting [Recovered/Resolved]
  - Nausea [Recovered/Resolved]
  - Hypoaesthesia [Not Recovered/Not Resolved]
  - Paraesthesia [Not Recovered/Not Resolved]
  - Condition aggravated [Not Recovered/Not Resolved]
  - Dizziness [Recovered/Resolved]

NARRATIVE: CASE EVENT DATE: 20250101
